FAERS Safety Report 11904511 (Version 1)
Quarter: 2016Q1

REPORT INFORMATION
  Report Type: Spontaneous
  Country: GB (occurrence: GB)
  Receive Date: 20160111
  Receipt Date: 20160111
  Transmission Date: 20160526
  Serious: Yes (Other)
  Sender: FDA-Public Use
  Company Number: PHHY2015GB173378

PATIENT
  Sex: Male

DRUGS (10)
  1. CABERGOLINE. [Suspect]
     Active Substance: CABERGOLINE
     Indication: ON AND OFF PHENOMENON
  2. ROPINIROLE. [Suspect]
     Active Substance: ROPINIROLE
     Indication: PARKINSON^S DISEASE
     Route: 065
  3. LEVODOPA [Suspect]
     Active Substance: LEVODOPA
     Indication: PARKINSON^S DISEASE
     Route: 065
  4. PRAMIPEXOLE. [Suspect]
     Active Substance: PRAMIPEXOLE
     Indication: PARKINSON^S DISEASE
     Route: 065
  5. ROPINIROLE. [Suspect]
     Active Substance: ROPINIROLE
     Indication: DYSKINESIA
  6. SELEGILINE [Suspect]
     Active Substance: SELEGILINE
     Indication: PARKINSON^S DISEASE
     Route: 065
  7. PRAMIPEXOLE. [Suspect]
     Active Substance: PRAMIPEXOLE
     Indication: DYSKINESIA
  8. CABERGOLINE. [Suspect]
     Active Substance: CABERGOLINE
     Indication: DYSKINESIA
     Dosage: 4 MG, QD
     Route: 065
  9. CABERGOLINE. [Suspect]
     Active Substance: CABERGOLINE
     Indication: DRUG WITHDRAWAL SYNDROME
  10. PERGOLIDE [Suspect]
     Active Substance: PERGOLIDE
     Indication: PARKINSON^S DISEASE
     Route: 065

REACTIONS (5)
  - Withdrawal syndrome [Recovering/Resolving]
  - On and off phenomenon [Recovering/Resolving]
  - Impulse-control disorder [Recovering/Resolving]
  - Stereotypy [Recovering/Resolving]
  - Dyskinesia [Recovering/Resolving]
